FAERS Safety Report 6457062-X (Version None)
Quarter: 2009Q4

REPORT INFORMATION
  Report Type: 
  Country: None (occurrence: None)
  Receive Date: 20091125
  Receipt Date: 20091120
  Transmission Date: 20100525
  Serious: Yes (Death, Hospitalization)
  Sender: FDA-Public Use
  Company Number: A0825408A

PATIENT
  Sex: Female

DRUGS (2)
  1. SERETIDE [Suspect]
     Dosage: 2PUFF TWICE PER DAY
     Route: 055
     Dates: start: 20090401, end: 20091106
  2. TEOLONG [Concomitant]
     Dosage: 1TAB TWICE PER DAY
     Route: 065
     Dates: start: 20000101, end: 20091106

REACTIONS (1)
  - DEATH [None]
